FAERS Safety Report 5193712-6 (Version None)
Quarter: 2007Q1

REPORT INFORMATION
  Report Type: 
  Country: None (occurrence: None)
  Receive Date: 20061222
  Receipt Date: 20061211
  Transmission Date: 20070707
  Serious: Yes (Hospitalization)
  Sender: FDA-Public Use
  Company Number: 2006PV013713

PATIENT
  Age: 32 Year
  Sex: Male
  Weight: 150.5942 kg

DRUGS (7)
  1. BYETTA [Suspect]
     Indication: DIABETES MELLITUS NON-INSULIN-DEPENDENT
     Dosage: 5 MCG; BID; SC
     Route: 058
     Dates: start: 20060323, end: 20060408
  2. METFORMIN HCL [Concomitant]
  3. AMARYL [Concomitant]
  4. PLAVIX [Concomitant]
  5. COLCHICINE [Concomitant]
  6. LISINOPRIL [Concomitant]
  7. ASPIRIN [Concomitant]

REACTIONS (22)
  - ACUTE PRERENAL FAILURE [None]
  - ALANINE AMINOTRANSFERASE INCREASED [None]
  - ANOREXIA [None]
  - ASPARTATE AMINOTRANSFERASE INCREASED [None]
  - BLOOD GLUCOSE FLUCTUATION [None]
  - BLOOD SODIUM DECREASED [None]
  - CALCULUS URETERIC [None]
  - DEHYDRATION [None]
  - HAEMATEMESIS [None]
  - HYDRONEPHROSIS [None]
  - HYDROURETER [None]
  - NEPHROLITHIASIS [None]
  - PROTEIN URINE PRESENT [None]
  - PYREXIA [None]
  - RENAL FAILURE ACUTE [None]
  - RENAL HAEMORRHAGE [None]
  - RENAL TUBULAR NECROSIS [None]
  - TESTICULAR PAIN [None]
  - URINE BILIRUBIN INCREASED [None]
  - URINE KETONE BODY PRESENT [None]
  - WEIGHT DECREASED [None]
  - WHITE BLOOD CELLS URINE POSITIVE [None]
